FAERS Safety Report 22029112 (Version 1)
Quarter: 2023Q1

REPORT INFORMATION
  Report Type: Spontaneous
  Country: GB (occurrence: GB)
  Receive Date: 20230223
  Receipt Date: 20230223
  Transmission Date: 20230418
  Serious: Yes (Hospitalization)
  Sender: FDA-Public Use
  Company Number: GB-TEVA-2023-GB-2858388

PATIENT
  Age: 53 Year
  Sex: Male

DRUGS (2)
  1. ACITRETIN [Suspect]
     Active Substance: ACITRETIN
     Indication: Psoriasis
     Route: 065
  2. ACITRETIN [Suspect]
     Active Substance: ACITRETIN
     Indication: Rosacea

REACTIONS (4)
  - Vasculitis gastrointestinal [Recovering/Resolving]
  - Cutaneous vasculitis [Recovering/Resolving]
  - Gastrointestinal disorder [Recovering/Resolving]
  - Rosacea [Recovering/Resolving]
